FAERS Safety Report 6199507-9 (Version None)
Quarter: 2009Q2

REPORT INFORMATION
  Report Type: 
  Country: None (occurrence: None)
  Receive Date: 20090522
  Receipt Date: 20090512
  Transmission Date: 20091009
  Serious: Yes (Hospitalization)
  Sender: FDA-Public Use
  Company Number: US-AVENTIS-200913934US

PATIENT
  Sex: Female
  Weight: 74.84 kg

DRUGS (13)
  1. KETEK [Suspect]
     Indication: ACUTE SINUSITIS
     Route: 048
     Dates: start: 20051007, end: 20051012
  2. AUGMENTIN '125' [Concomitant]
     Indication: SINUS CONGESTION
     Dates: start: 20050901, end: 20050101
  3. ALLEGRA-D 12 HOUR [Concomitant]
     Dosage: DOSE: 1 TAB
     Route: 048
  4. SYNTHROID [Concomitant]
     Indication: HYPOTHYROIDISM
     Route: 048
  5. ESTROGENIC SUBSTANCE [Concomitant]
     Dosage: DOSE: UNK
  6. ASTELIN                            /00884002/ [Concomitant]
     Dosage: DOSE: UNK
  7. DARVOCET-N 100 [Concomitant]
     Dosage: DOSE: UNK
     Dates: start: 20050101
  8. LEVAQUIN [Concomitant]
     Dosage: DOSE: UNK
     Dates: start: 20051026
  9. MEDROL [Concomitant]
     Route: 048
     Dates: start: 20050101
  10. CALCIUM [Concomitant]
     Route: 048
  11. DETROL [Concomitant]
     Route: 048
  12. PROTONIX [Concomitant]
     Route: 048
  13. TORADOL [Concomitant]
     Route: 048

REACTIONS (7)
  - ALANINE AMINOTRANSFERASE INCREASED [None]
  - ASPARTATE AMINOTRANSFERASE INCREASED [None]
  - BLOOD ALKALINE PHOSPHATASE INCREASED [None]
  - BLOOD BILIRUBIN INCREASED [None]
  - HYPERTRANSAMINASAEMIA [None]
  - NAUSEA [None]
  - VOMITING [None]
